FAERS Safety Report 18439857 (Version 4)
Quarter: 2021Q4

REPORT INFORMATION
  Report Type: Report from Study
  Country: GB (occurrence: GB)
  Receive Date: 20201029
  Receipt Date: 20211207
  Transmission Date: 20220304
  Serious: Yes (Death, Hospitalization, Other)
  Sender: FDA-Public Use
  Company Number: None

PATIENT
  Age: 44 Year
  Sex: Female

DRUGS (37)
  1. DOCETAXEL [Suspect]
     Active Substance: DOCETAXEL
     Indication: Breast cancer
     Dosage: 6 CYCLES
     Route: 042
     Dates: start: 20161117, end: 20170321
  2. PERTUZUMAB [Suspect]
     Active Substance: PERTUZUMAB
     Indication: Breast cancer
     Dosage: PLANNED NUMBER OF CYCLES COMPLETED?ALSO RECEIVED 420 MG ON 17-NOV-2016
     Route: 042
     Dates: start: 20161020, end: 20161020
  3. TRASTUZUMAB [Suspect]
     Active Substance: TRASTUZUMAB
     Indication: Breast cancer
     Dosage: PLANNED NUMBER OF CYCLES COMPLETED,?RECEIVED 600 MG ON 17-NOV-2016,798 MG ON 20-OCT-2016
     Route: 042
     Dates: start: 20161117
  4. FILGRASTIM [Concomitant]
     Active Substance: FILGRASTIM
     Dosage: DAYS 2-6 POST CHEMO
     Route: 058
     Dates: start: 20161118, end: 20161121
  5. CHLORPHENIRAMINE MALEATE [Concomitant]
     Active Substance: CHLORPHENIRAMINE MALEATE
     Route: 042
     Dates: start: 20161117, end: 20161117
  6. FLUCONAZOLE [Concomitant]
     Active Substance: FLUCONAZOLE
     Indication: Oral candidiasis
     Route: 048
     Dates: start: 20161207, end: 20161214
  7. LANSOPRAZOLE [Concomitant]
     Active Substance: LANSOPRAZOLE
     Route: 048
     Dates: start: 20190326
  8. METOCLOPRAMIDE [Concomitant]
     Active Substance: METOCLOPRAMIDE
     Indication: Nausea
     Route: 042
     Dates: start: 20161117, end: 20161117
  9. DEXAMETHASONE [Concomitant]
     Active Substance: DEXAMETHASONE
     Indication: Metastases to central nervous system
     Dosage: ALSO RECEIVED 8 MG
     Route: 048
  10. HYDROCORTISONE [Concomitant]
     Active Substance: HYDROCORTISONE
     Dosage: ALSO RECEIVED 50 MG DOSE ON 22-JAN-2017
     Route: 042
     Dates: start: 20161117, end: 20161117
  11. AMOXICILLIN\CLAVULANATE POTASSIUM [Concomitant]
     Active Substance: AMOXICILLIN\CLAVULANATE POTASSIUM
     Indication: Lower respiratory tract infection
     Dosage: ALSO RECEIVED 1500 MG TAB FROM 25-JAN-2017 TO 30-JAN-2017, 1.2 G IV (22-JAN-2017TO24-JAN-2017)
     Route: 048
     Dates: start: 20161207
  12. CLOTRIMAZOLE [Concomitant]
     Active Substance: CLOTRIMAZOLE
     Route: 065
     Dates: start: 20180419, end: 20180419
  13. IBUPROFEN [Concomitant]
     Active Substance: IBUPROFEN
     Indication: Pain
     Route: 048
     Dates: start: 20180308, end: 20180621
  14. BISACODYL [Concomitant]
     Active Substance: BISACODYL
     Indication: Constipation
     Route: 048
     Dates: start: 20171009, end: 20190326
  15. MORPHINE SULFATE [Concomitant]
     Active Substance: MORPHINE SULFATE
     Route: 048
     Dates: start: 20170922, end: 20190326
  16. LEVETIRACETAM [Concomitant]
     Active Substance: LEVETIRACETAM
     Indication: Seizure
     Route: 048
     Dates: start: 20181213, end: 20190103
  17. FUROSEMIDE [Concomitant]
     Active Substance: FUROSEMIDE
     Indication: Oedema peripheral
     Dosage: RECEIVED 40 MG FROM 08-MAR-2017 TO 26-MAR-2019
     Route: 048
     Dates: start: 20170510, end: 20190326
  18. RAMIPRIL [Concomitant]
     Active Substance: RAMIPRIL
     Route: 048
     Dates: start: 20170608, end: 20190326
  19. VOLTAROL [Concomitant]
     Active Substance: DICLOFENAC SODIUM
     Route: 061
     Dates: start: 20181023, end: 20190326
  20. FLUCLOXACILLIN [Concomitant]
     Active Substance: FLUCLOXACILLIN
     Route: 048
     Dates: start: 20170406, end: 20170413
  21. DALTEPARIN [Concomitant]
     Active Substance: DALTEPARIN
     Indication: Deep vein thrombosis
     Dosage: 18 IU
     Route: 058
     Dates: start: 20170418, end: 20180510
  22. MORPHINE SULFATE [Concomitant]
     Active Substance: MORPHINE SULFATE
     Route: 048
     Dates: start: 20180830, end: 20190326
  23. OXYCODONE [Concomitant]
     Active Substance: OXYCODONE
     Dosage: DOSE :40 MG FROM01-NOV-2017 TO 30-NOV-2017
     Route: 048
     Dates: start: 20171130, end: 20190326
  24. ONDANSETRON [Concomitant]
     Active Substance: ONDANSETRON
     Indication: Nausea
     Route: 048
     Dates: start: 20170510, end: 20190326
  25. LACTULOSE [Concomitant]
     Active Substance: LACTULOSE
     Indication: Constipation
     Route: 048
     Dates: start: 20180830, end: 20190326
  26. AMOXICILLIN\CLAVULANATE POTASSIUM [Concomitant]
     Active Substance: AMOXICILLIN\CLAVULANATE POTASSIUM
     Route: 042
     Dates: start: 20170122, end: 20170124
  27. TINZAPARIN [Concomitant]
     Active Substance: TINZAPARIN
     Dosage: 4500 UNIT
     Route: 058
     Dates: start: 20181205, end: 20181212
  28. BUPRENORPHINE [Concomitant]
     Active Substance: BUPRENORPHINE
     Indication: Pain
     Dosage: DOSE :5 MG FROM 23-OCT-2018 TO 12-DEC-2018
     Route: 062
     Dates: start: 20181212, end: 20190326
  29. GABAPENTIN [Concomitant]
     Active Substance: GABAPENTIN
     Route: 048
     Dates: start: 20171116, end: 20180621
  30. POLYETHYLENE GLYCOLS [Concomitant]
     Active Substance: POLYETHYLENE GLYCOLS
     Indication: Constipation
     Route: 048
     Dates: start: 20170922, end: 20190326
  31. NAPROXEN [Concomitant]
     Active Substance: NAPROXEN
     Route: 048
     Dates: start: 20170922, end: 20190326
  32. AMOXICILLIN [Concomitant]
     Active Substance: AMOXICILLIN
     Indication: Rhinitis
     Route: 048
     Dates: start: 20181205, end: 20181205
  33. MOVICOL [Concomitant]
     Active Substance: POLYETHYLENE GLYCOL 3350\POTASSIUM CHLORIDE\SODIUM BICARBONATE\SODIUM CHLORIDE
     Indication: Constipation
     Dosage: 1 POWDER SACHET
     Route: 048
     Dates: end: 20190326
  34. POLYETHYLENE GLYCOL 3350\POTASSIUM CHLORIDE\SODIUM BICARBONATE\SODIUM [Concomitant]
     Active Substance: POLYETHYLENE GLYCOL 3350\POTASSIUM CHLORIDE\SODIUM BICARBONATE\SODIUM CHLORIDE
     Indication: Constipation
     Dosage: 2 SACHET
     Route: 048
     Dates: start: 20171009, end: 20190326
  35. OXYCONTIN [Concomitant]
     Active Substance: OXYCODONE HYDROCHLORIDE
     Indication: Pain
     Route: 048
     Dates: start: 20171116, end: 20180621
  36. CANDESARTAN CILEXETIL [Concomitant]
     Active Substance: CANDESARTAN CILEXETIL
     Indication: Candida infection
     Route: 067
     Dates: start: 20180419, end: 20180419
  37. SENNA [Concomitant]
     Active Substance: SENNA LEAF\SENNOSIDES\SENNOSIDES A AND B
     Dosage: 15 MG, 1X/DAY
     Route: 048
     Dates: start: 20170922, end: 20180404

REACTIONS (9)
  - Joint swelling [Not Recovered/Not Resolved]
  - Peripheral swelling [Not Recovered/Not Resolved]
  - Swelling face [Recovered/Resolved]
  - Deep vein thrombosis [Recovered/Resolved]
  - Spinal compression fracture [Recovered/Resolved]
  - Back pain [Not Recovered/Not Resolved]
  - Ejection fraction decreased [Recovered/Resolved]
  - Constipation [Recovering/Resolving]
  - Disease progression [Fatal]

NARRATIVE: CASE EVENT DATE: 20170122
